FAERS Safety Report 6547060-X (Version None)
Quarter: 2009Q4

REPORT INFORMATION
  Report Type: 
  Country: None (occurrence: None)
  Receive Date: 20091215
  Receipt Date: 20090917
  Transmission Date: 20100525
  Serious: Yes (Other)
  Sender: FDA-Public Use
  Company Number: FEI2009-1966

PATIENT
  Age: 39 Year
  Sex: Female
  Weight: 67.586 kg

DRUGS (4)
  1. INTRAUTERINE COPPER CONTRACEPTIVE [Suspect]
     Indication: CONTRACEPTION
     Dosage: INTRA-UTERINE
     Route: 015
     Dates: start: 20040421, end: 20090916
  2. LORTAB [Concomitant]
  3. ULTRAM [Concomitant]
  4. NEUROSTIN (ALL OTHER THERAPEUTIC PRODUCTS) [Concomitant]

REACTIONS (2)
  - MEDICAL DEVICE COMPLICATION [None]
  - PELVIC PAIN [None]
